FAERS Safety Report 14855806 (Version 1)
Quarter: 2018Q2

REPORT INFORMATION
  Report Type: Spontaneous
  Country: CZ (occurrence: CZ)
  Receive Date: 20180507
  Receipt Date: 20180507
  Transmission Date: 20180711
  Serious: Yes (Death, Hospitalization)
  Sender: FDA-Public Use
  Company Number: CZ-PFIZER INC-2018182161

PATIENT
  Sex: Female

DRUGS (2)
  1. ZINFORO [Suspect]
     Active Substance: CEFTAROLINE FOSAMIL
     Indication: SEPSIS
     Dosage: 9 AMPOULES OVERALL
  2. CLINDAMYCIN HCL [Suspect]
     Active Substance: CLINDAMYCIN HYDROCHLORIDE
     Indication: SEPSIS
     Dosage: UNK

REACTIONS (1)
  - Neoplasm progression [Fatal]
